FAERS Safety Report 8180863 (Version 3)
Quarter: 2012Q4

REPORT INFORMATION
  Report Type: 
  Country: AU (occurrence: AU)
  Receive Date: 20111014
  Receipt Date: 20121121
  Transmission Date: 20130627
  Serious: Yes (Death, Hospitalization)
  Sender: FDA-Public Use
  Company Number: AU-PFIZER INC-2011241662

PATIENT
  Age: 50 Year
  Sex: Male

DRUGS (3)
  1. TORISEL [Suspect]
     Indication: RENAL CELL CARCINOMA
     Dosage: 25 mg, single
     Route: 042
     Dates: start: 20110926, end: 20110926
  2. ZOLEDRONATE [Concomitant]
     Indication: HYPERCALCAEMIA
     Dosage: 4 mg, single
     Route: 042
     Dates: start: 20110919, end: 20110919
  3. LEVODOPA [Concomitant]
     Indication: PARKINSON^S DISEASE
     Route: 048

REACTIONS (5)
  - Disease progression [Fatal]
  - Metastatic renal cell carcinoma [Fatal]
  - Renal failure [Unknown]
  - Salmonella bacteraemia [Unknown]
  - Disseminated intravascular coagulation [Unknown]
